FAERS Safety Report 10174112 (Version 3)
Quarter: 2015Q3

REPORT INFORMATION
  Report Type: Spontaneous
  Country: US (occurrence: US)
  Receive Date: 20140515
  Receipt Date: 20150817
  Transmission Date: 20151125
  Serious: Yes (Death, Hospitalization, Other)
  Sender: FDA-Public Use
  Company Number: US-GILEAD-2014-0102410

PATIENT
  Age: 72 Year
  Sex: Female

DRUGS (11)
  1. IRON [Concomitant]
     Active Substance: IRON
  2. FISH OIL [Concomitant]
     Active Substance: FISH OIL
  3. LETAIRIS [Suspect]
     Active Substance: AMBRISENTAN
     Indication: PULMONARY HYPERTENSION
     Dosage: 10 MG, QD
     Route: 065
     Dates: start: 20080304
  4. LISINOPRIL. [Concomitant]
     Active Substance: LISINOPRIL
  5. LASIX [Concomitant]
     Active Substance: FUROSEMIDE
  6. ASPIRIN. [Concomitant]
     Active Substance: ASPIRIN
  7. LETAIRIS [Suspect]
     Active Substance: AMBRISENTAN
     Indication: CONNECTIVE TISSUE DISORDER
  8. POTASSIUM [Concomitant]
     Active Substance: POTASSIUM
  9. ENALAPRIL [Concomitant]
     Active Substance: ENALAPRIL
  10. COENZYME Q10 [Concomitant]
     Active Substance: UBIDECARENONE
  11. NIFEDIPINE. [Concomitant]
     Active Substance: NIFEDIPINE

REACTIONS (2)
  - Asthenia [Not Recovered/Not Resolved]
  - Lung neoplasm malignant [Fatal]
